FAERS Safety Report 7115589-1 (Version None)
Quarter: 2010Q4

REPORT INFORMATION
  Report Type: 
  Country: None (occurrence: None)
  Receive Date: 20101122
  Receipt Date: 20101117
  Transmission Date: 20110411
  Serious: No
  Sender: FDA-Public Use
  Company Number: US-B.I. PHARMACEUTICALS,INC./RIDGEFIELD-2010-BP-11995BP

PATIENT
  Sex: Female

DRUGS (12)
  1. SPIRIVA [Suspect]
     Indication: CHRONIC OBSTRUCTIVE PULMONARY DISEASE
     Dosage: 18 MCG
     Route: 055
     Dates: start: 20100601, end: 20100701
  2. PROZAC [Concomitant]
  3. KLONOPIN [Concomitant]
  4. DEPAKOTE [Concomitant]
  5. GEODON [Concomitant]
  6. PLAVIX [Concomitant]
  7. ADVAIR DISKUS 100/50 [Concomitant]
  8. SYNTHROID [Concomitant]
  9. RESTORIL [Concomitant]
  10. LOVASTATIN [Concomitant]
  11. ASPIRIN [Concomitant]
  12. PRILOSEC [Concomitant]

REACTIONS (2)
  - DYSURIA [None]
  - URINE OUTPUT DECREASED [None]
